FAERS Safety Report 20987286 (Version 2)
Quarter: 2022Q3

REPORT INFORMATION
  Report Type: Report from Study
  Country: US (occurrence: US)
  Receive Date: 20220621
  Receipt Date: 20220809
  Transmission Date: 20221026
  Serious: No
  Sender: FDA-Public Use
  Company Number: US-BIOVITRUM-2022US06224

PATIENT
  Age: 55 Year
  Sex: Female

DRUGS (3)
  1. KINERET [Suspect]
     Active Substance: ANAKINRA
     Indication: Pericarditis
  2. KINERET [Suspect]
     Active Substance: ANAKINRA
     Dates: start: 20190910
  3. KINERET [Suspect]
     Active Substance: ANAKINRA

REACTIONS (4)
  - Arthralgia [Unknown]
  - COVID-19 [Unknown]
  - Product dose omission issue [Unknown]
  - Off label use [Not Recovered/Not Resolved]

NARRATIVE: CASE EVENT DATE: 20190910
